FAERS Safety Report 24833405 (Version 1)
Quarter: 2025Q1

REPORT INFORMATION
  Report Type: Spontaneous
  Country: US (occurrence: US)
  Receive Date: 20250112
  Receipt Date: 20250112
  Transmission Date: 20250409
  Serious: Yes (Other)
  Sender: AUROBINDO
  Company Number: US-AUROBINDO-AUR-APL-2025-001056

PATIENT
  Age: 40 Year
  Sex: Male

DRUGS (3)
  1. BROMOCRIPTINE MESYLATE [Suspect]
     Active Substance: BROMOCRIPTINE MESYLATE
     Indication: Pituitary tumour benign
     Route: 065
  2. CABERGOLINE [Suspect]
     Active Substance: CABERGOLINE
     Indication: Pituitary tumour benign
     Route: 065
  3. CABERGOLINE [Suspect]
     Active Substance: CABERGOLINE
     Route: 065

REACTIONS (1)
  - Drug ineffective [Unknown]
